FAERS Safety Report 6486686-9 (Version None)
Quarter: 2009Q4

REPORT INFORMATION
  Report Type: 
  Country: None (occurrence: None)
  Receive Date: 20091210
  Receipt Date: 20091202
  Transmission Date: 20100525
  Serious: Yes (Life-Threatening)
  Sender: FDA-Public Use
  Company Number: EE-ROCHE-672470

PATIENT
  Sex: Female
  Weight: 90 kg

DRUGS (3)
  1. TAMIFLU [Suspect]
     Dosage: FREQUENCY: X 2 PER DAY.
     Route: 048
     Dates: start: 20091113, end: 20091118
  2. CYMEVENE [Concomitant]
     Dosage: FREQUENCY: X 2 PER DAY.
     Route: 048
     Dates: end: 20091109
  3. VALCYTE [Concomitant]
     Dosage: FREQUENCY: X 2 PER DAY.
     Route: 048
     Dates: start: 20091110, end: 20091123

REACTIONS (1)
  - LEUKOPENIA [None]
